FAERS Safety Report 12912370 (Version 4)
Quarter: 2016Q4

REPORT INFORMATION
  Report Type: Spontaneous
  Country: US (occurrence: US)
  Receive Date: 20161104
  Receipt Date: 20161201
  Transmission Date: 20170207
  Serious: Yes (Other)
  Sender: FDA-Public Use
  Company Number: US-OMEROS CORPORATION-2016OME00035

PATIENT
  Age: 66 Year
  Sex: Female
  Weight: 72 kg

DRUGS (19)
  1. CYCLOPENTOLATE. [Concomitant]
     Active Substance: CYCLOPENTOLATE
     Dosage: 1 DROP, EVERY 5 MINUTES X 3
     Dates: start: 20161017, end: 20161017
  2. BESIVANCE [Concomitant]
     Active Substance: BESIFLOXACIN
     Dosage: UNK, 2X/DAY
     Dates: start: 20161017
  3. LIDOCAINE PRESERVATIVE FREE [Concomitant]
     Dosage: UNK
     Dates: start: 20161017, end: 20161017
  4. DUOVISC [Concomitant]
     Active Substance: CHONDROITIN SULFATE A\HYALURONATE SODIUM
  5. BSS (ALCON) [Concomitant]
     Dosage: UNK
     Dates: start: 20161017, end: 20161017
  6. ILEVRO [Concomitant]
     Active Substance: NEPAFENAC
     Dosage: 1 DROP, 1X/DAY UNTIL GONE
     Dates: start: 20161017
  7. LEVOTHYROXINE. [Concomitant]
     Active Substance: LEVOTHYROXINE
  8. TETRACAINE. [Concomitant]
     Active Substance: TETRACAINE
     Dosage: 2 DROP, ONCE
     Dates: start: 20161017, end: 20161017
  9. OMIDRIA [Suspect]
     Active Substance: KETOROLAC\PHENYLEPHRINE
     Indication: CATARACT OPERATION
     Dosage: UNK UNK, ONCE
     Dates: start: 20161017, end: 20161017
  10. ILEVRO [Concomitant]
     Active Substance: NEPAFENAC
     Dosage: 1 DROP, EVERY 5 MINUTES X 3
     Dates: start: 20161017, end: 20161017
  11. BETADINE [Concomitant]
     Active Substance: POVIDONE-IODINE
     Dosage: UNK
     Dates: start: 20161017, end: 20161017
  12. CITALOPRAM [Concomitant]
     Active Substance: CITALOPRAM HYDROBROMIDE
  13. ANCEF [Concomitant]
     Active Substance: CEFAZOLIN SODIUM
     Dosage: 1 G, ONCE
     Route: 042
     Dates: start: 20161017, end: 20161017
  14. DUREZOL [Concomitant]
     Active Substance: DIFLUPREDNATE
     Dosage: 1 DROP, 2X/DAY UNTIL GONE
     Dates: start: 20161023
  15. ALPHAGAN P [Concomitant]
     Active Substance: BRIMONIDINE TARTRATE
     Dosage: UNK
     Dates: start: 20161017, end: 20161017
  16. PHENYLEPHRINE [Concomitant]
     Active Substance: PHENYLEPHRINE\PHENYLEPHRINE HYDROCHLORIDE
     Dosage: 1 DROP, EVERY 5 MINUTES X 3
     Dates: start: 20161017, end: 20161017
  17. BESIVANCE [Concomitant]
     Active Substance: BESIFLOXACIN
     Dosage: UNK UNK, ONCE
     Dates: start: 20161017, end: 20161017
  18. MIOSTAT [Concomitant]
     Active Substance: CARBACHOL
     Dosage: UNK
     Dates: start: 20161017, end: 20161017
  19. DUREZOL [Concomitant]
     Active Substance: DIFLUPREDNATE
     Dosage: 1 DROP, 4X/DAY
     Dates: start: 20161017, end: 20161023

REACTIONS (1)
  - Toxic anterior segment syndrome [Recovered/Resolved]

NARRATIVE: CASE EVENT DATE: 20161018
